FAERS Safety Report 20424802 (Version 1)
Quarter: 2022Q1

REPORT INFORMATION
  Report Type: Report from Study
  Country: US (occurrence: US)
  Receive Date: 20220204
  Receipt Date: 20220204
  Transmission Date: 20220423
  Serious: No
  Sender: FDA-Public Use
  Company Number: US-EXELIXIS-CABO-20036130

PATIENT
  Age: 71 Year
  Sex: Male

DRUGS (15)
  1. CABOMETYX [Suspect]
     Active Substance: CABOZANTINIB S-MALATE
     Indication: Hepatocellular carcinoma
     Dosage: 40 MG, QD
     Route: 048
     Dates: start: 20201126
  2. GLIMEPIRIDE [Concomitant]
     Active Substance: GLIMEPIRIDE
  3. LACTULOSE [Concomitant]
     Active Substance: LACTULOSE
  4. LEVOTHYROXINE [Concomitant]
     Active Substance: LEVOTHYROXINE
  5. METOPROLOL [Concomitant]
     Active Substance: METOPROLOL
  6. MIRTAZAPINE [Concomitant]
     Active Substance: MIRTAZAPINE
  7. NITROFURANTOIN [Concomitant]
     Active Substance: NITROFURANTOIN
  8. SPIRONOLACTONE [Concomitant]
     Active Substance: SPIRONOLACTONE
  9. URSODIOL [Concomitant]
     Active Substance: URSODIOL
  10. ALBUTEROL [Concomitant]
     Active Substance: ALBUTEROL
  11. AMOXICILLIN\CLAVULANATE POTASSIUM [Concomitant]
     Active Substance: AMOXICILLIN\CLAVULANATE POTASSIUM
  12. ACETAMINOPHEN\CODEINE PHOSPHATE [Concomitant]
     Active Substance: ACETAMINOPHEN\CODEINE PHOSPHATE
  13. BENZONATATE [Concomitant]
     Active Substance: BENZONATATE
  14. FUROSEMIDE [Concomitant]
     Active Substance: FUROSEMIDE
  15. GENERLAC [Concomitant]
     Active Substance: LACTULOSE

REACTIONS (7)
  - Hallucination [Unknown]
  - Gait disturbance [Unknown]
  - Lethargy [Unknown]
  - Oral pain [Unknown]
  - Pain [Unknown]
  - Diarrhoea [Unknown]
  - Decreased appetite [Unknown]

NARRATIVE: CASE EVENT DATE: 20201205
